FAERS Safety Report 15517256 (Version 1)
Quarter: 2018Q4

REPORT INFORMATION
  Report Type: Spontaneous
  Country: US (occurrence: US)
  Receive Date: 20181017
  Receipt Date: 20181017
  Transmission Date: 20190205
  Serious: No
  Sender: FDA-Public Use
  Company Number: US-GILEAD-2018-0368389

PATIENT
  Sex: Male

DRUGS (2)
  1. BIKTARVY [Suspect]
     Active Substance: BICTEGRAVIR SODIUM\EMTRICITABINE\TENOFOVIR ALAFENAMIDE FUMARATE
     Indication: HIV TEST POSITIVE
     Dosage: UNK
     Route: 065
  2. BACTRIM [Concomitant]
     Active Substance: SULFAMETHOXAZOLE\TRIMETHOPRIM

REACTIONS (4)
  - Impaired work ability [Unknown]
  - Nightmare [Unknown]
  - Blood HIV RNA increased [Unknown]
  - Stress [Unknown]
